FAERS Safety Report 25664808 (Version 1)
Quarter: 2025Q3

REPORT INFORMATION
  Report Type: Spontaneous
  Country: CN (occurrence: CN)
  Receive Date: 20250811
  Receipt Date: 20250811
  Transmission Date: 20251020
  Serious: Yes (Hospitalization)
  Sender: PFIZER
  Company Number: CN-PFIZER INC-PV202500094734

PATIENT
  Age: 49 Year
  Sex: Male
  Weight: 66.5 kg

DRUGS (8)
  1. CYTARABINE [Suspect]
     Active Substance: CYTARABINE
     Indication: Lung neoplasm malignant
     Dosage: 0.050 G, 1X/DAY
     Route: 037
     Dates: start: 20250721, end: 20250721
  2. CARBOPLATIN [Suspect]
     Active Substance: CARBOPLATIN
     Indication: Lung neoplasm malignant
     Dosage: 600 MG, 1X/DAY
     Route: 041
     Dates: start: 20250723, end: 20250723
  3. PEMETREXED DISODIUM [Suspect]
     Active Substance: PEMETREXED DISODIUM
     Indication: Lung neoplasm malignant
     Dosage: 0.860 G, 1X/DAY
     Route: 041
     Dates: start: 20250723, end: 20250723
  4. METHOTREXATE [Suspect]
     Active Substance: METHOTREXATE
     Indication: Lung neoplasm malignant
     Dosage: 5 MG, 1X/DAY
     Route: 037
     Dates: start: 20250721, end: 20250721
  5. SODIUM CHLORIDE [Concomitant]
     Active Substance: SODIUM CHLORIDE
     Indication: Vehicle solution use
     Dosage: 10 ML, 1X/DAY
     Route: 037
     Dates: start: 20250721, end: 20250721
  6. SODIUM CHLORIDE [Concomitant]
     Active Substance: SODIUM CHLORIDE
     Dosage: 5 ML, 1X/DAY
     Route: 037
     Dates: start: 20250721, end: 20250721
  7. SODIUM CHLORIDE [Concomitant]
     Active Substance: SODIUM CHLORIDE
     Dosage: 100 ML, 1X/DAY
     Route: 041
     Dates: start: 20250723, end: 20250723
  8. DEXTROSE [Concomitant]
     Active Substance: DEXTROSE MONOHYDRATE
     Indication: Vehicle solution use
     Dosage: 500 ML, 1X/DAY
     Route: 041
     Dates: start: 20250723, end: 20250723

REACTIONS (7)
  - White blood cell count decreased [Recovering/Resolving]
  - Neutrophil count decreased [Recovering/Resolving]
  - Platelet count decreased [Recovering/Resolving]
  - Myelosuppression [Recovering/Resolving]
  - Diarrhoea [Recovering/Resolving]
  - Asthenia [Recovering/Resolving]
  - Off label use [Unknown]

NARRATIVE: CASE EVENT DATE: 20250721
